FAERS Safety Report 20244104 (Version 1)
Quarter: 2021Q4

REPORT INFORMATION
  Report Type: Spontaneous
  Country: GB (occurrence: GB)
  Receive Date: 20211229
  Receipt Date: 20211229
  Transmission Date: 20220303
  Serious: Yes (Other)
  Sender: FDA-Public Use
  Company Number: GB-MHRA-EYC 00268797

PATIENT
  Age: 24 Year
  Sex: Female
  Weight: 54 kg

DRUGS (2)
  1. SERTRALINE [Suspect]
     Active Substance: SERTRALINE HYDROCHLORIDE
     Indication: Product used for unknown indication
     Dosage: 50 MILLIGRAM
     Route: 048
     Dates: start: 20211105, end: 20211210
  2. MADINETTE [Concomitant]
     Indication: Product used for unknown indication
     Dosage: 3.2 MILLIGRAM
     Route: 065

REACTIONS (3)
  - Female orgasmic disorder [Unknown]
  - Inadequate lubrication [Unknown]
  - Genital hypoaesthesia [Unknown]

NARRATIVE: CASE EVENT DATE: 20211110
